FAERS Safety Report 20895349 (Version 1)
Quarter: 2022Q2

REPORT INFORMATION
  Report Type: Spontaneous
  Country: US (occurrence: None)
  Receive Date: 20220531
  Receipt Date: 20220531
  Transmission Date: 20220721
  Serious: Yes (Hospitalization, Other)
  Sender: FDA-Public Use
  Company Number: 2022A197567

PATIENT
  Age: 50 Year
  Sex: Male
  Weight: 136.1 kg

DRUGS (19)
  1. CRESTOR [Suspect]
     Active Substance: ROSUVASTATIN CALCIUM
     Indication: Product used for unknown indication
     Dosage: 20.0MG UNKNOWN
     Route: 048
     Dates: start: 20220311
  2. CRESTOR [Suspect]
     Active Substance: ROSUVASTATIN CALCIUM
     Indication: Product used for unknown indication
     Dosage: 10.0MG UNKNOWN
     Route: 048
  3. KORLYM [Suspect]
     Active Substance: MIFEPRISTONE
     Indication: Cushing^s syndrome
     Route: 048
     Dates: start: 20220311
  4. KORLYM [Suspect]
     Active Substance: MIFEPRISTONE
     Indication: Cushing^s syndrome
     Route: 048
     Dates: start: 20220311
  5. PREDNISONE [Concomitant]
     Active Substance: PREDNISONE
     Dates: start: 20220411
  6. OXYGEN [Concomitant]
     Active Substance: OXYGEN
     Dates: start: 20220413
  7. CARVEDILOL [Concomitant]
     Active Substance: CARVEDILOL
  8. HUMALOG [Concomitant]
     Active Substance: INSULIN LISPRO
  9. LIPITOR [Concomitant]
     Active Substance: ATORVASTATIN CALCIUM
  10. LISINOPRIL [Concomitant]
     Active Substance: LISINOPRIL
  11. METFORMIN [Concomitant]
     Active Substance: METFORMIN HYDROCHLORIDE
  12. VITAMINS [Concomitant]
     Active Substance: VITAMINS
  13. OZEMPIC [Concomitant]
     Active Substance: SEMAGLUTIDE
  14. PIOGLITAZONE [Concomitant]
     Active Substance: PIOGLITAZONE
  15. PROAIR HFA [Concomitant]
     Active Substance: ALBUTEROL SULFATE
  16. TRESIBA [Concomitant]
     Active Substance: INSULIN DEGLUDEC
  17. VITAMIN D NOS [Concomitant]
     Active Substance: VITAMIN D NOS
  18. ASPIRIN [Concomitant]
     Active Substance: ASPIRIN
  19. ANDROGEL [Concomitant]
     Active Substance: TESTOSTERONE

REACTIONS (7)
  - Pneumonia [Recovering/Resolving]
  - Nausea [Unknown]
  - Insomnia [Unknown]
  - Thirst [Unknown]
  - Oedema peripheral [Not Recovered/Not Resolved]
  - Muscular weakness [Unknown]
  - Pain in extremity [Unknown]

NARRATIVE: CASE EVENT DATE: 20220301
